FAERS Safety Report 8697983 (Version 3)
Quarter: 2013Q3

REPORT INFORMATION
  Report Type: Report from Study
  Country: US (occurrence: US)
  Receive Date: 20120801
  Receipt Date: 20130813
  Transmission Date: 20140515
  Serious: Yes (Other)
  Sender: FDA-Public Use
  Company Number: PHEH2012US014946

PATIENT
  Age: 34 Year
  Sex: Female

DRUGS (7)
  1. GILENYA [Suspect]
     Indication: MULTIPLE SCLEROSIS
     Dosage: 0.5 MG, QD
     Route: 048
     Dates: start: 20110830, end: 20120727
  2. WELLBUTRIN [Concomitant]
     Indication: DEPRESSION
     Dosage: 300 MG, QD
     Route: 048
  3. FAMCICLOVIR [Concomitant]
     Dosage: 250 MG, BID
     Route: 048
  4. NASONEX [Concomitant]
     Dosage: 2 SPRAYS DAILY
  5. ALDACTONE [Concomitant]
     Dosage: 25 MG, QD
     Route: 048
  6. ADDERALL [Concomitant]
     Indication: FATIGUE
     Dosage: 30 MG, BID
     Route: 048
  7. ZONISAMIDE [Concomitant]
     Dosage: UNK UKN, UNK

REACTIONS (1)
  - Weight decreased [Unknown]
